FAERS Safety Report 9863044 (Version 2)
Quarter: 2014Q1

REPORT INFORMATION
  Report Type: Spontaneous
  Country: JP (occurrence: JP)
  Receive Date: 20140203
  Receipt Date: 20140205
  Transmission Date: 20141002
  Serious: Yes (Death, Hospitalization)
  Sender: FDA-Public Use
  Company Number: JP-SA-2014SA009154

PATIENT
  Age: 66 Year
  Sex: Female

DRUGS (5)
  1. ONETAXOTERE [Suspect]
     Indication: BREAST CANCER
     Route: 042
     Dates: start: 20131129
  2. ONETAXOTERE [Suspect]
     Indication: BREAST CANCER
     Route: 042
     Dates: start: 20140110
  3. HERCEPTIN [Concomitant]
     Indication: BREAST CANCER
     Dosage: 351 MG/BODY/DOSE
     Dates: start: 20131129, end: 20140110
  4. PERJETA [Concomitant]
     Indication: BREAST CANCER
     Dosage: 420 MG/BODY/DOSE
     Dates: start: 20131129, end: 20140110
  5. ZOMETA [Concomitant]
     Indication: BREAST CANCER
     Dosage: DOSE: 4MG/BODY/DOSE
     Dates: start: 20131129, end: 20140110

REACTIONS (3)
  - Febrile neutropenia [Fatal]
  - Disseminated intravascular coagulation [Fatal]
  - Infection [Fatal]
